FAERS Safety Report 5632075-6 (Version None)
Quarter: 2008Q1

REPORT INFORMATION
  Report Type: 
  Country: None (occurrence: None)
  Receive Date: 20080220
  Receipt Date: 20080215
  Transmission Date: 20080703
  Serious: Yes (Hospitalization)
  Sender: FDA-Public Use
  Company Number: A0710586A

PATIENT
  Age: 79 Year
  Sex: Female
  Weight: 58 kg

DRUGS (4)
  1. PARNATE [Suspect]
     Indication: DEPRESSION
     Dosage: 10MG TWICE PER DAY
     Route: 048
     Dates: start: 19780101
  2. CLONAZEPAM [Concomitant]
     Dosage: 2MG PER DAY
     Dates: start: 19780101
  3. PROMETHAZINE [Concomitant]
     Dates: start: 19780101
  4. VERAPAMIL HCL [Concomitant]
     Dates: start: 19580101

REACTIONS (2)
  - INTRACRANIAL ANEURYSM [None]
  - TACHYCARDIA [None]
